FAERS Safety Report 10188334 (Version 1)
Quarter: 2014Q2

REPORT INFORMATION
  Report Type: Spontaneous
  Country: US (occurrence: None)
  Receive Date: 20140521
  Receipt Date: 20140521
  Transmission Date: 20141212
  Serious: No
  Sender: FDA-Public Use
  Company Number: None

PATIENT
  Age: 25 Year
  Sex: Female
  Weight: 104.33 kg

DRUGS (1)
  1. CREST PRO HEALTH MOUTHWASH 24 HOUR PROTECTION -L-22635395RD [Suspect]
     Dosage: ORAL RINSE?
     Route: 048

REACTIONS (2)
  - Dysgeusia [None]
  - Ageusia [None]
